FAERS Safety Report 18359185 (Version 2)
Quarter: 2020Q4

REPORT INFORMATION
  Report Type: Spontaneous
  Country: US (occurrence: US)
  Receive Date: 20201008
  Receipt Date: 20201207
  Transmission Date: 20210114
  Serious: No
  Sender: FDA-Public Use
  Company Number: US-SA-2020SA277614

PATIENT

DRUGS (2)
  1. DUPIXENT [Suspect]
     Active Substance: DUPILUMAB
     Indication: DERMATITIS ATOPIC
     Dosage: 300 MG, QOW (UNDER THE SKIN)
     Route: 058
     Dates: start: 20200825
  2. FLONASE ALLERGY RELIEF [Concomitant]
     Active Substance: FLUTICASONE PROPIONATE
     Dosage: UNK

REACTIONS (7)
  - Therapeutic response shortened [Unknown]
  - Ocular hyperaemia [Unknown]
  - Pain [Unknown]
  - Oral herpes [Unknown]
  - Insomnia [Unknown]
  - Eye pruritus [Unknown]
  - Dermatitis atopic [Unknown]

NARRATIVE: CASE EVENT DATE: 2020
